FAERS Safety Report 16601910 (Version 2)
Quarter: 2019Q3

REPORT INFORMATION
  Report Type: Spontaneous
  Country: US (occurrence: US)
  Receive Date: 20190719
  Receipt Date: 20190729
  Transmission Date: 20191004
  Serious: No
  Sender: FDA-Public Use
  Company Number: US-BIOMARINAP-US-2019-124706

PATIENT
  Sex: Female

DRUGS (1)
  1. PALYNZIQ [Suspect]
     Active Substance: PEGVALIASE-PQPZ
     Indication: PHENYLKETONURIA
     Dosage: 2.5 MILLIGRAM, QW
     Route: 058
     Dates: start: 20190701

REACTIONS (5)
  - Peripheral swelling [Unknown]
  - Joint stiffness [Not Recovered/Not Resolved]
  - Injection site erythema [Unknown]
  - Arthralgia [Not Recovered/Not Resolved]
  - Rash macular [Unknown]
